FAERS Safety Report 4720678-2 (Version None)
Quarter: 2005Q3

REPORT INFORMATION
  Report Type: 
  Country: None (occurrence: None)
  Receive Date: 20050721
  Receipt Date: 20050708
  Transmission Date: 20060218
  Serious: Yes (Hospitalization)
  Sender: FDA-Public Use
  Company Number: US-JNJFOC-20050302560

PATIENT
  Age: 48 Year
  Sex: Female

DRUGS (9)
  1. DURAGESIC-100 [Suspect]
     Route: 062
     Dates: start: 20050119, end: 20050302
  2. DURAGESIC-100 [Suspect]
     Route: 062
     Dates: start: 20050119, end: 20050302
  3. DURAGESIC-100 [Suspect]
     Route: 062
     Dates: start: 20050119, end: 20050302
  4. DALMANE [Concomitant]
     Indication: INSOMNIA
     Route: 048
  5. XANAX [Concomitant]
     Indication: AGITATION
     Route: 048
  6. PROZAC [Concomitant]
     Indication: DEPRESSION
     Route: 048
  7. WELLBUTRIN [Concomitant]
     Indication: DEPRESSION
     Route: 048
  8. TYLENOL W/ CODEINE NO. 3 [Concomitant]
     Indication: PAIN
     Route: 048
  9. ESKLITH [Concomitant]
     Route: 048

REACTIONS (8)
  - CONSTIPATION [None]
  - DEPRESSION [None]
  - DISORIENTATION [None]
  - DRUG WITHDRAWAL SYNDROME [None]
  - INSOMNIA [None]
  - LIMB DISCOMFORT [None]
  - RESTLESS LEGS SYNDROME [None]
  - RESTLESSNESS [None]
